FAERS Safety Report 5944571-2 (Version None)
Quarter: 2008Q4

REPORT INFORMATION
  Report Type: 
  Country: None (occurrence: None)
  Receive Date: 20081105
  Receipt Date: 20081020
  Transmission Date: 20090506
  Serious: Yes (Other)
  Sender: FDA-Public Use
  Company Number: 001#1#2008-00582

PATIENT
  Age: 59 Year
  Sex: Male

DRUGS (1)
  1. NEUPRO [Suspect]
     Indication: PARKINSON'S DISEASE
     Dosage: 4 MG/24H (4 MG/24H 1 IN 1 DAY(S)) TRANSDERMAL
     Route: 062
     Dates: start: 20080101, end: 20080824

REACTIONS (5)
  - ALCOHOL USE [None]
  - DEPENDENCE [None]
  - ILL-DEFINED DISORDER [None]
  - MARITAL PROBLEM [None]
  - TOBACCO USER [None]
